FAERS Safety Report 12946345 (Version 5)
Quarter: 2017Q1

REPORT INFORMATION
  Report Type: Report from Study
  Country: US (occurrence: US)
  Receive Date: 20161116
  Receipt Date: 20170131
  Transmission Date: 20170428
  Serious: Yes (Other)
  Sender: FDA-Public Use
  Company Number: US-GILEAD-2016-0243550

PATIENT
  Age: 57 Year
  Sex: Female
  Weight: 87.53 kg

DRUGS (37)
  1. ADEMPAS [Suspect]
     Active Substance: RIOCIGUAT
     Indication: PRODUCT USED FOR UNKNOWN INDICATION
     Route: 065
  2. VITAMIN D                          /00107901/ [Concomitant]
     Active Substance: ERGOCALCIFEROL
  3. VITAMIN C [Concomitant]
     Active Substance: ASCORBIC ACID
  4. ALTACE [Concomitant]
     Active Substance: RAMIPRIL
  5. WARFARIN [Concomitant]
     Active Substance: WARFARIN
  6. XANAX [Concomitant]
     Active Substance: ALPRAZOLAM
  7. AMBRISENTAN [Suspect]
     Active Substance: AMBRISENTAN
     Indication: PULMONARY HYPERTENSION
     Dosage: 5 MG, QD
     Route: 065
  8. FLONASE                            /00908302/ [Concomitant]
     Active Substance: MOMETASONE FUROATE
  9. REVATIO [Concomitant]
     Active Substance: SILDENAFIL CITRATE
  10. ABILIFY [Concomitant]
     Active Substance: ARIPIPRAZOLE
  11. PYRIDIUM [Concomitant]
     Active Substance: PHENAZOPYRIDINE
  12. PHENERGAN [Concomitant]
     Active Substance: PROMETHAZINE HYDROCHLORIDE
  13. ALDACTONE [Concomitant]
     Active Substance: SPIRONOLACTONE
  14. AZELASTINE [Concomitant]
     Active Substance: AZELASTINE
  15. SEROQUEL [Concomitant]
     Active Substance: QUETIAPINE FUMARATE
  16. CITRACAL                           /00751520/ [Concomitant]
     Active Substance: CALCIUM CITRATE
  17. NEURONTIN [Concomitant]
     Active Substance: GABAPENTIN
  18. VITAMIN A                          /00056001/ [Concomitant]
     Active Substance: RETINOL
  19. COUMADIN [Concomitant]
     Active Substance: WARFARIN SODIUM
  20. ASTELIN                            /00085801/ [Concomitant]
     Active Substance: AZELASTINE HYDROCHLORIDE
  21. VITAMIN B12 [Concomitant]
     Active Substance: CYANOCOBALAMIN
  22. EDECRIN                            /00020501/ [Concomitant]
  23. KLOR-CON [Concomitant]
     Active Substance: POTASSIUM CHLORIDE
  24. EXCEDRIN [Concomitant]
     Active Substance: ACETAMINOPHEN\ASPIRIN\CAFFEINE
  25. CHOLECALCIFEROL [Concomitant]
     Active Substance: CHOLECALCIFEROL
  26. ACEROLA-C [Concomitant]
  27. PULMICORT TURBUHALER [Concomitant]
     Active Substance: BUDESONIDE
  28. CYMBALTA [Concomitant]
     Active Substance: DULOXETINE HYDROCHLORIDE
  29. ZETIA [Concomitant]
     Active Substance: EZETIMIBE
  30. SYNTHROID [Concomitant]
     Active Substance: LEVOTHYROXINE SODIUM
  31. FOLIC ACID. [Concomitant]
     Active Substance: FOLIC ACID
  32. ASPIRIN                            /00002701/ [Concomitant]
     Active Substance: ASPIRIN
  33. ZETIA [Concomitant]
     Active Substance: EZETIMIBE
  34. LIORESAL [Concomitant]
     Active Substance: BACLOFEN
  35. ATROVENT [Concomitant]
     Active Substance: IPRATROPIUM BROMIDE
  36. NIACIN. [Concomitant]
     Active Substance: NIACIN
  37. VITAMIN D3 [Concomitant]
     Active Substance: CHOLECALCIFEROL

REACTIONS (17)
  - Contusion [Recovered/Resolved]
  - Dyspnoea exertional [Recovered/Resolved]
  - Nasopharyngitis [Recovered/Resolved]
  - Syncope [Recovered/Resolved]
  - Fatigue [Recovered/Resolved]
  - Joint swelling [Recovered/Resolved]
  - Loss of consciousness [Recovered/Resolved]
  - Malaise [Recovered/Resolved]
  - Chest pain [Recovered/Resolved]
  - Fall [Recovered/Resolved]
  - Cough [Recovered/Resolved]
  - Headache [Recovered/Resolved]
  - Hypotension [Recovered/Resolved]
  - Rales [Recovered/Resolved]
  - Dizziness [Recovered/Resolved]
  - Dysgeusia [Recovered/Resolved]
  - Exercise tolerance decreased [Recovered/Resolved]

NARRATIVE: CASE EVENT DATE: 20161112
